FAERS Safety Report 24552697 (Version 1)
Quarter: 2024Q4

REPORT INFORMATION
  Report Type: Spontaneous
  Country: JP (occurrence: JP)
  Receive Date: 20241027
  Receipt Date: 20241027
  Transmission Date: 20250115
  Serious: Yes (Death, Other)
  Sender: ALEXION PHARMACEUTICALS
  Company Number: JP-ASTRAZENECA-240108674_011620_P_1

PATIENT
  Age: 69 Year

DRUGS (4)
  1. LYNPARZA [Suspect]
     Active Substance: OLAPARIB
     Indication: Prostate cancer
     Dosage: NUMBER OF SEPARATE DOSAGES UNKNOWN
  2. LYNPARZA [Suspect]
     Active Substance: OLAPARIB
     Dosage: NUMBER OF SEPARATE DOSAGES UNKNOWN
  3. LYNPARZA [Suspect]
     Active Substance: OLAPARIB
     Dosage: NUMBER OF SEPARATE DOSAGES UNKNOWN
  4. LYNPARZA [Suspect]
     Active Substance: OLAPARIB
     Dosage: NUMBER OF SEPARATE DOSAGES UNKNOWN

REACTIONS (1)
  - Death [Fatal]
